FAERS Safety Report 12593447 (Version 1)
Quarter: 2016Q3

REPORT INFORMATION
  Report Type: Spontaneous
  Country: GB (occurrence: GB)
  Receive Date: 20160726
  Receipt Date: 20160726
  Transmission Date: 20161109
  Serious: Yes (Disabling)
  Sender: FDA-Public Use
  Company Number: PHHY2016GB098093

PATIENT
  Age: 76 Year
  Sex: Female
  Weight: 66.22 kg

DRUGS (5)
  1. OXYBUTYNIN HYDROCHLORIDE [Concomitant]
     Active Substance: OXYBUTYNIN CHLORIDE
     Indication: PRODUCT USED FOR UNKNOWN INDICATION
     Dosage: 2.5 MG, QD
     Route: 065
  2. ASPIRINA [Concomitant]
     Active Substance: ASPIRIN
     Indication: HYPERTENSION
     Dosage: 1 DF, QD
     Route: 048
     Dates: start: 2008
  3. OMEPRAZOLE SANDOZ [Suspect]
     Active Substance: OMEPRAZOLE
     Indication: CHEST PAIN
     Dosage: 20 MG, QD
     Route: 048
     Dates: start: 201505, end: 20160704
  4. INDAPAMIDE. [Concomitant]
     Active Substance: INDAPAMIDE
     Indication: HYPERTENSION
     Dosage: 2.5 MG
     Route: 065
  5. NAPROXEN. [Concomitant]
     Active Substance: NAPROXEN
     Indication: ARTHRALGIA
     Route: 065

REACTIONS (17)
  - Anal incontinence [Recovered/Resolved]
  - Insomnia [Recovered/Resolved]
  - Myalgia [Recovered/Resolved]
  - Urinary incontinence [Recovered/Resolved]
  - Asthenia [Recovered/Resolved]
  - Somnolence [Recovered/Resolved]
  - Flatulence [Recovered/Resolved]
  - Malaise [Recovered/Resolved]
  - Peripheral swelling [Recovered/Resolved]
  - Stomatitis [Recovered/Resolved]
  - Depressed mood [Recovered/Resolved]
  - Muscle spasms [Recovered/Resolved]
  - Joint swelling [Recovered/Resolved]
  - Dry mouth [Recovered/Resolved]
  - Vertigo [Recovered/Resolved]
  - Confusional state [Recovered/Resolved]
  - Vision blurred [Recovered/Resolved]
